FAERS Safety Report 12679447 (Version 1)
Quarter: 2016Q3

REPORT INFORMATION
  Report Type: Spontaneous
  Country: US (occurrence: None)
  Receive Date: 20160823
  Receipt Date: 20160823
  Transmission Date: 20161109
  Serious: Yes (Life-Threatening, Hospitalization)
  Sender: FDA-Public Use
  Company Number: None

PATIENT
  Age: 84 Year
  Sex: Female
  Weight: 120.2 kg

DRUGS (19)
  1. CEPHALEXIN. [Concomitant]
     Active Substance: CEPHALEXIN
  2. PANTOPRAZOLE [Concomitant]
     Active Substance: PANTOPRAZOLE SODIUM
  3. LASIX [Concomitant]
     Active Substance: FUROSEMIDE
  4. PRESERVISION [Concomitant]
     Active Substance: MINERALS\VITAMINS
  5. CENTRUM SILVER WOMEN WITH IRON [Concomitant]
  6. NPH IRBESARTAN [Concomitant]
  7. NOVOLOG [Concomitant]
     Active Substance: INSULIN ASPART
  8. ISOSORBIDE MONONITRATE. [Concomitant]
     Active Substance: ISOSORBIDE MONONITRATE
  9. DOCUSATE [Concomitant]
     Active Substance: DOCUSATE
  10. MYRBETRIQ [Suspect]
     Active Substance: MIRABEGRON
     Indication: URINARY INCONTINENCE
     Dosage: AUGUST 1ST (AROUND THERE) - 8/10
     Route: 048
  11. ASA [Concomitant]
     Active Substance: ASPIRIN
  12. METOPROLOL TARTRATE. [Concomitant]
     Active Substance: METOPROLOL TARTRATE
  13. CRESTOR [Concomitant]
     Active Substance: ROSUVASTATIN CALCIUM
  14. LORAZEPAM. [Concomitant]
     Active Substance: LORAZEPAM
  15. NITROSTAT [Concomitant]
     Active Substance: NITROGLYCERIN
  16. PHENAZOPYRIDINE. [Concomitant]
     Active Substance: PHENAZOPYRIDINE
  17. MIRALAX [Concomitant]
     Active Substance: POLYETHYLENE GLYCOL 3350
  18. RABIETIC ER [Concomitant]
  19. PLAVIS [Concomitant]

REACTIONS (2)
  - Hypertension [None]
  - Chest pain [None]

NARRATIVE: CASE EVENT DATE: 20160809
